FAERS Safety Report 6306945-X (Version None)
Quarter: 2009Q3

REPORT INFORMATION
  Report Type: 
  Country: None (occurrence: None)
  Receive Date: 20090810
  Receipt Date: 20090730
  Transmission Date: 20100115
  Serious: Yes (Hospitalization)
  Sender: FDA-Public Use
  Company Number: ALD1-JP-2009-0011

PATIENT
  Age: 33 Year
  Sex: Female

DRUGS (1)
  1. ALDOMET [Suspect]
     Dates: start: 20080501, end: 20080701

REACTIONS (1)
  - LIVER DISORDER [None]
